FAERS Safety Report 23480548 (Version 1)
Quarter: 2024Q1

REPORT INFORMATION
  Report Type: Other
  Country: ES (occurrence: ES)
  Receive Date: 20240205
  Receipt Date: 20240205
  Transmission Date: 20240410
  Serious: Yes (Hospitalization)
  Sender: FDA-Public Use
  Company Number: None

PATIENT

DRUGS (3)
  1. OMEPRAZOLE [Interacting]
     Active Substance: OMEPRAZOLE
     Indication: Prophylaxis
     Dosage: 20 MILLIGRAM, QD
     Route: 048
     Dates: start: 20231204, end: 20231218
  2. AMIKACIN [Interacting]
     Active Substance: AMIKACIN
     Indication: Skin ulcer
     Dosage: 300 MILLIGRAM, QD
     Route: 042
     Dates: start: 20231204, end: 20231214
  3. MEROPENEM [Interacting]
     Active Substance: MEROPENEM
     Indication: Skin ulcer
     Dosage: 1 GRAM, QD
     Route: 042
     Dates: start: 20231203, end: 20231214

REACTIONS (1)
  - Pseudomembranous colitis [Recovered/Resolved]

NARRATIVE: CASE EVENT DATE: 20231216
